FAERS Safety Report 20453117 (Version 2)
Quarter: 2022Q2

REPORT INFORMATION
  Report Type: Spontaneous
  Country: US (occurrence: US)
  Receive Date: 20220210
  Receipt Date: 20220425
  Transmission Date: 20220720
  Serious: No
  Sender: FDA-Public Use
  Company Number: US-ELI_LILLY_AND_COMPANY-US202201006174

PATIENT
  Age: 65 Year
  Sex: Female

DRUGS (2)
  1. BASAGLAR [Suspect]
     Active Substance: INSULIN GLARGINE
     Indication: Type 2 diabetes mellitus
     Dosage: 26 U, DAILY
     Route: 058
     Dates: end: 20220321
  2. BASAGLAR [Suspect]
     Active Substance: INSULIN GLARGINE
     Dosage: 26 U, DAILY
     Route: 058
     Dates: end: 20220321

REACTIONS (3)
  - Road traffic accident [Recovered/Resolved]
  - Weight loss poor [Not Recovered/Not Resolved]
  - Visual impairment [Not Recovered/Not Resolved]

NARRATIVE: CASE EVENT DATE: 20211001
